FAERS Safety Report 4264728-9 (Version None)
Quarter: 2004Q1

REPORT INFORMATION
  Report Type: 
  Country: None (occurrence: None)
  Receive Date: 20040102
  Receipt Date: 20031222
  Transmission Date: 20041129
  Serious: Yes (Other)
  Sender: FDA-Public Use
  Company Number: US_031299593

PATIENT
  Sex: Male

DRUGS (3)
  1. HUMATROPE [Suspect]
     Indication: HYPOPITUITARISM
     Dosage: 0.25 MG/1 DAY
     Dates: end: 20031222
  2. LEVOTHYROXINE SODIUM [Concomitant]
  3. TESTOSTERONE [Concomitant]

REACTIONS (2)
  - BLOOD CREATININE INCREASED [None]
  - MALIGNANT FIBROUS HISTIOCYTOMA [None]
